FAERS Safety Report 6704019-7 (Version None)
Quarter: 2010Q2

REPORT INFORMATION
  Report Type: 
  Country: None (occurrence: None)
  Receive Date: 20100423
  Receipt Date: 20090406
  Transmission Date: 20101027
  Serious: No
  Sender: FDA-Public Use
  Company Number: ALL1-2009-00912

PATIENT
  Age: 32 Year
  Sex: Female
  Weight: 57.6 kg

DRUGS (2)
  1. VYVANSE [Suspect]
     Indication: ATTENTION DEFICIT/HYPERACTIVITY DISORDER
     Dosage: 30 MG, 1X/DAY:QD, ORAL
     Route: 048
     Dates: start: 20090301
  2. UNISOM (DIPHENHYDRAMINE HYDROCHLORIDE) [Concomitant]

REACTIONS (3)
  - DIZZINESS [None]
  - PRESYNCOPE [None]
  - TUNNEL VISION [None]
